FAERS Safety Report 4764947-9 (Version None)
Quarter: 2005Q3

REPORT INFORMATION
  Report Type: 
  Country: None (occurrence: None)
  Receive Date: 20050909
  Receipt Date: 20050831
  Transmission Date: 20060218
  Serious: Yes (Life-Threatening, Hospitalization)
  Sender: FDA-Public Use
  Company Number: CA-JNJFOC-20050605086

PATIENT
  Sex: Male
  Weight: 83.01 kg

DRUGS (5)
  1. LEVOFLOXACIN [Suspect]
     Indication: BRONCHITIS
     Route: 048
  2. ALBUTEROL SULFATE HFA [Concomitant]
     Route: 055
  3. FLOMAX [Concomitant]
     Route: 048
  4. LIPITOR [Concomitant]
  5. ASCORBIC ACID [Concomitant]

REACTIONS (1)
  - SINUS ARREST [None]
